FAERS Safety Report 12223236 (Version 3)
Quarter: 2016Q2

REPORT INFORMATION
  Report Type: Spontaneous
  Country: FI (occurrence: FI)
  Receive Date: 20160330
  Receipt Date: 20160511
  Transmission Date: 20160815
  Serious: Yes (Hospitalization, Other)
  Sender: FDA-Public Use
  Company Number: PHHY2016FI040113

PATIENT
  Age: 30 Year
  Sex: Male

DRUGS (6)
  1. PANADOL FORTE [Concomitant]
     Active Substance: ACETAMINOPHEN\CAFFEINE
     Indication: BACK PAIN
     Dosage: 1 G, PRN  (2-3 TIMES PER DAY AS NEEDED OR AS A ONE-WEEK COURSE)
     Route: 048
     Dates: start: 20160229
  2. SIRDALUD [Concomitant]
     Active Substance: TIZANIDINE
     Indication: MUSCLE RELAXANT THERAPY
  3. VOLTAREN [Suspect]
     Active Substance: DICLOFENAC SODIUM
     Indication: BACK PAIN
     Dosage: 75 MG, BID (75 MG IN THE MORNING AND 75 MG IN THE EVENING)
     Route: 048
     Dates: start: 20160310, end: 20160311
  4. MELOXICAM. [Suspect]
     Active Substance: MELOXICAM
     Indication: BACK PAIN
     Dosage: 15 MG, QD
     Route: 048
     Dates: start: 20160210, end: 20160219
  5. SIRDALUD [Concomitant]
     Active Substance: TIZANIDINE
     Indication: BACK PAIN
     Dosage: 2 MG, PRN (EVENING AS NEEDED)
     Route: 048
     Dates: start: 20160229
  6. ESOMEPRAZOL ORION [Concomitant]
     Active Substance: ESOMEPRAZOLE MAGNESIUM
     Indication: PROPHYLAXIS
     Dosage: 40 MG IN THE MORNING
     Route: 048
     Dates: start: 20160310

REACTIONS (4)
  - Haematochezia [Recovered/Resolved]
  - Inflammatory bowel disease [Not Recovered/Not Resolved]
  - Abdominal pain [Recovered/Resolved]
  - Large intestinal ulcer haemorrhage [Recovered/Resolved]

NARRATIVE: CASE EVENT DATE: 20160311
